FAERS Safety Report 6029798-6 (Version None)
Quarter: 2008Q4

REPORT INFORMATION
  Report Type: 
  Country: None (occurrence: None)
  Receive Date: 20081222
  Receipt Date: 20080918
  Transmission Date: 20090506
  Serious: No
  Sender: FDA-Public Use
  Company Number: US-WYE-H06054908

PATIENT
  Age: 75 Year
  Sex: Female

DRUGS (8)
  1. PRISTIQ [Suspect]
     Indication: DEPRESSION
     Dosage: 50 MG 1X PER 1 DAY,ORAL
     Route: 048
     Dates: start: 20080902
  2. PRISTIQ [Suspect]
     Indication: GENERALISED ANXIETY DISORDER
     Dosage: 50 MG 1X PER 1 DAY,ORAL
     Route: 048
     Dates: start: 20080902
  3. LIPITOR [Concomitant]
  4. HYDROCHLOROTHIAZIDE [Concomitant]
  5. ATENOLOL [Concomitant]
  6. NIASPAN [Concomitant]
  7. ACTOS [Concomitant]
  8. AMARYL [Concomitant]

REACTIONS (4)
  - ARTHRALGIA [None]
  - DRY MOUTH [None]
  - INSOMNIA [None]
  - NAUSEA [None]
